FAERS Safety Report 4377616-4 (Version None)
Quarter: 2004Q2

REPORT INFORMATION
  Report Type: 
  Country: None (occurrence: None)
  Receive Date: 20040615
  Receipt Date: 20040603
  Transmission Date: 20050107
  Serious: Yes (Death, Hospitalization)
  Sender: FDA-Public Use
  Company Number: FR-GLAXOSMITHKLINE-B0334938A

PATIENT
  Age: 46 Year
  Sex: Male
  Weight: 61 kg

DRUGS (5)
  1. COMBIVIR [Suspect]
     Indication: ACQUIRED IMMUNODEFICIENCY SYNDROME
     Dosage: 2TAB PER DAY
     Route: 048
     Dates: start: 20040413, end: 20040504
  2. EPIVIR [Suspect]
     Indication: ACQUIRED IMMUNODEFICIENCY SYNDROME
     Dosage: 150MG TWICE PER DAY
     Route: 048
     Dates: start: 20030211, end: 20040413
  3. ZERIT [Suspect]
     Indication: ACQUIRED IMMUNODEFICIENCY SYNDROME
     Dosage: 40MG TWICE PER DAY
     Route: 048
     Dates: start: 20030211, end: 20040413
  4. CRIXIVAN [Concomitant]
     Indication: ACQUIRED IMMUNODEFICIENCY SYNDROME
     Dosage: 400MG TWICE PER DAY
     Route: 048
     Dates: start: 20030211, end: 20040504
  5. NORVIR [Concomitant]
     Indication: ACQUIRED IMMUNODEFICIENCY SYNDROME
     Dosage: 100MG TWICE PER DAY
     Route: 048
     Dates: start: 20030211, end: 20040504

REACTIONS (16)
  - ABDOMINAL PAIN UPPER [None]
  - AGITATION [None]
  - BLOOD BICARBONATE DECREASED [None]
  - BLOOD LACTIC ACID INCREASED [None]
  - BLOOD PH DECREASED [None]
  - BRADYCARDIA [None]
  - CARDIAC ARREST [None]
  - DEPRESSED LEVEL OF CONSCIOUSNESS [None]
  - GENERAL PHYSICAL HEALTH DETERIORATION [None]
  - HYPEROXIA [None]
  - HYPOCAPNIA [None]
  - HYPOTENSION [None]
  - LACTIC ACIDOSIS [None]
  - MUSCLE CRAMP [None]
  - NAUSEA [None]
  - VOMITING [None]
